FAERS Safety Report 19455706 (Version 1)
Quarter: 2021Q2

REPORT INFORMATION
  Report Type: Spontaneous
  Country: US (occurrence: US)
  Receive Date: 20210623
  Receipt Date: 20210623
  Transmission Date: 20210717
  Serious: Yes (Hospitalization)
  Sender: FDA-Public Use
  Company Number: None

PATIENT
  Age: 60 Year
  Sex: Female

DRUGS (8)
  1. MELATONIN [Concomitant]
     Active Substance: MELATONIN
  2. GLUCOS/CHOND [Concomitant]
  3. HYDROCO/APAP [Concomitant]
     Active Substance: ACETAMINOPHEN\HYDROCODONE
  4. CRANBERRY. [Concomitant]
     Active Substance: CRANBERRY
  5. TYLENOL [Concomitant]
     Active Substance: ACETAMINOPHEN
  6. ACTEMRA [Suspect]
     Active Substance: TOCILIZUMAB
     Indication: RHEUMATOID ARTHRITIS
     Route: 058
     Dates: start: 20180825
  7. CENTRUM [Concomitant]
     Active Substance: VITAMINS
  8. METHOCARBAM [Concomitant]
     Active Substance: METHOCARBAMOL

REACTIONS (2)
  - Therapy interrupted [None]
  - Bronchitis [None]

NARRATIVE: CASE EVENT DATE: 202104
